FAERS Safety Report 8887720 (Version 1)
Quarter: 2012Q4

REPORT INFORMATION
  Report Type: Spontaneous
  Country: IT (occurrence: None)
  Receive Date: 20121031
  Receipt Date: 20121031
  Transmission Date: 20130627
  Serious: Yes (Hospitalization)
  Sender: FDA-Public Use
  Company Number: VAL_00941_2012

PATIENT
  Age: 91 Year
  Sex: Male

DRUGS (2)
  1. METOPROLOL [Suspect]
     Indication: PRODUCT USED FOR UNKNOWN INDICATION
     Dosage: 1 posologic unit daily
     Route: 048
     Dates: start: 20110823, end: 20120822
  2. PRITOR [Suspect]
     Dosage: 1 posologic unit daily
     Route: 048
     Dates: start: 20120823, end: 20120822

REACTIONS (1)
  - Syncope [None]
